FAERS Safety Report 21753730 (Version 2)
Quarter: 2022Q4

REPORT INFORMATION
  Report Type: Spontaneous
  Country: US (occurrence: None)
  Receive Date: 20221220
  Receipt Date: 20221226
  Transmission Date: 20230113
  Serious: Yes (Hospitalization, Other)
  Sender: FDA-Public Use
  Company Number: US-ROCHE-3244064

PATIENT
  Sex: Female
  Weight: 72.640 kg

DRUGS (2)
  1. RITUXAN [Suspect]
     Active Substance: RITUXIMAB
     Indication: Urticarial vasculitis
     Route: 042
     Dates: start: 20221207, end: 20221207
  2. RITUXAN [Suspect]
     Active Substance: RITUXIMAB
     Indication: Urticarial vasculitis

REACTIONS (11)
  - Swelling [Not Recovered/Not Resolved]
  - Speech disorder [Not Recovered/Not Resolved]
  - Dysphagia [Not Recovered/Not Resolved]
  - Eye swelling [Not Recovered/Not Resolved]
  - Mass [Not Recovered/Not Resolved]
  - Eye disorder [Not Recovered/Not Resolved]
  - Off label use [Unknown]
  - Corneal bleeding [Not Recovered/Not Resolved]
  - Eyelid oedema [Not Recovered/Not Resolved]
  - Conjunctival oedema [Not Recovered/Not Resolved]
  - Lip swelling [Unknown]

NARRATIVE: CASE EVENT DATE: 20221207
